FAERS Safety Report 17289417 (Version 2)
Quarter: 2020Q1

REPORT INFORMATION
  Report Type: Spontaneous
  Country: CH (occurrence: CH)
  Receive Date: 20200120
  Receipt Date: 20200131
  Transmission Date: 20200409
  Serious: Yes (Hospitalization)
  Sender: FDA-Public Use
  Company Number: NL-ASTRAZENECA-2020SE08415

PATIENT
  Age: 66 Year
  Sex: Female

DRUGS (9)
  1. CALCIMAGON [Concomitant]
     Active Substance: CALCIUM
  2. CRESTOR [Suspect]
     Active Substance: ROSUVASTATIN CALCIUM
     Route: 048
     Dates: start: 20191113
  3. CRESTOR [Suspect]
     Active Substance: ROSUVASTATIN CALCIUM
     Route: 048
     Dates: end: 20191030
  4. PLAVIX [Suspect]
     Active Substance: CLOPIDOGREL BISULFATE
     Dosage: UNKNOWN
     Route: 065
     Dates: start: 2018, end: 2018
  5. ATOZET [Suspect]
     Active Substance: ATORVASTATIN CALCIUM\EZETIMIBE
     Route: 048
     Dates: start: 20191031, end: 20191112
  6. BRILIQUE [Suspect]
     Active Substance: TICAGRELOR
     Dosage: UNKNOWN
     Route: 048
     Dates: start: 20180119, end: 2018
  7. EFIENT [Suspect]
     Active Substance: PRASUGREL HYDROCHLORIDE
     Route: 065
     Dates: start: 201811, end: 201901
  8. CANDESARTANUM [Concomitant]
     Dosage: UNKNOWN
  9. ASS CARDIO AXAPHARM [Suspect]
     Active Substance: ASPIRIN
     Route: 065
     Dates: start: 20180119

REACTIONS (3)
  - Dyspnoea [Recovered/Resolved]
  - Epistaxis [Recovered/Resolved]
  - Fatigue [Recovered/Resolved]

NARRATIVE: CASE EVENT DATE: 2018
